FAERS Safety Report 20393457 (Version 1)
Quarter: 2022Q1

REPORT INFORMATION
  Report Type: Spontaneous
  Country: US (occurrence: US)
  Receive Date: 20220128
  Receipt Date: 20220128
  Transmission Date: 20220424
  Serious: Yes (Other)
  Sender: FDA-Public Use
  Company Number: US-GLAXOSMITHKLINE-US2022GSK016067

PATIENT
  Sex: Male

DRUGS (7)
  1. ZANTAC [Suspect]
     Active Substance: RANITIDINE HYDROCHLORIDE
     Indication: Dyspepsia
     Dosage: OCCASIONAL, TOOK 2-3 WEEKS AT A TIME THOUGHTOUT YEARS|UNKNOWN AT THIS TIME|BOTH
     Route: 065
     Dates: start: 201202, end: 201701
  2. ZANTAC [Suspect]
     Active Substance: RANITIDINE HYDROCHLORIDE
     Indication: Dyspepsia
     Dosage: OCCASIONAL, TOOK 2-3 WEEKS AT A TIME THOUGHTOUT YEARS|UNKNOWN AT THIS TIME|BOTH
     Route: 065
     Dates: start: 201202, end: 201701
  3. ZANTAC [Suspect]
     Active Substance: RANITIDINE HYDROCHLORIDE
     Indication: Dyspepsia
     Dosage: OCCASIONAL, TOOK 2-3 WEEKS AT A TIME THOUGHTOUT YEARS|UNKNOWN AT THIS TIME|BOTH
     Route: 065
     Dates: start: 201202, end: 201701
  4. RANITIDINE [Suspect]
     Active Substance: RANITIDINE
     Indication: Dyspepsia
     Dosage: OCCASIONAL, TOOK 2-3 WEEKS AT A TIME THOUGHTOUT YEARS|UNKNOWN AT THIS TIME|BOTH
     Route: 065
     Dates: start: 201202, end: 201701
  5. RANITIDINE [Suspect]
     Active Substance: RANITIDINE
     Indication: Dyspepsia
     Dosage: OCCASIONAL, TOOK 2-3 WEEKS AT A TIME THOUGHTOUT YEARS|UNKNOWN AT THIS TIME|BOTH
     Route: 065
     Dates: start: 201202, end: 201701
  6. RANITIDINE [Suspect]
     Active Substance: RANITIDINE
     Indication: Dyspepsia
     Dosage: OCCASIONAL, TOOK 2-3 WEEKS AT A TIME THOUGHTOUT YEARS|UNKNOWN AT THIS TIME|BOTH
     Route: 065
     Dates: start: 201202, end: 201701
  7. RANITIDINE [Suspect]
     Active Substance: RANITIDINE
     Indication: Dyspepsia
     Dosage: OCCASIONAL, TOOK 2-3 WEEKS AT A TIME THOUGHTOUT YEARS|UNKNOWN AT THIS TIME|BOTH
     Route: 065
     Dates: start: 201202, end: 201701

REACTIONS (1)
  - Colorectal cancer [Unknown]
